FAERS Safety Report 12302051 (Version 2)
Quarter: 2018Q3

REPORT INFORMATION
  Report Type: Report from Study
  Country: None (occurrence: NL)
  Receive Date: 20160425
  Receipt Date: 20180723
  Transmission Date: 20181010
  Serious: Yes (Other)
  Sender: FDA-Public Use
  Company Number: NL-ABBVIE-16P-114-1590599-00

PATIENT
  Sex: Female
  Weight: 90 kg

DRUGS (5)
  1. DUODOPA [Suspect]
     Active Substance: CARBIDOPA\LEVODOPA
     Dosage: MD: 3.0, CD: 4.0, ED: 2.0, MND: 4.2, CND: 2.4, END: 1.2?USED EXTRA DOSE THREE TIMES A DAY.
     Route: 050
  2. DUODOPA [Suspect]
     Active Substance: CARBIDOPA\LEVODOPA
     Indication: PARKINSON^S DISEASE
     Dosage: MORNING DOSE: 4.5; CONTINUOUS DOSE: 2.5; EXTRA DOSE: 3.5NIGHT DOSE: 2.2
     Route: 050
     Dates: start: 20140624
  3. SYMMETREL [Concomitant]
     Active Substance: AMANTADINE HYDROCHLORIDE
     Indication: PRODUCT USED FOR UNKNOWN INDICATION
     Dosage: AFTER BREAKFAST
  4. SINEMET [Concomitant]
     Active Substance: CARBIDOPA\LEVODOPA
     Indication: PRODUCT USED FOR UNKNOWN INDICATION
     Dosage: 10:30 PM 250 MG AND 125 MG
  5. ROPINIROL [Concomitant]
     Active Substance: ROPINIROLE
     Indication: PRODUCT USED FOR UNKNOWN INDICATION

REACTIONS (5)
  - Stoma site irritation [Recovered/Resolved]
  - Sleep disorder [Recovering/Resolving]
  - Stoma site pain [Recovered/Resolved]
  - Fatigue [Recovering/Resolving]
  - Tension [Recovering/Resolving]
